FAERS Safety Report 4931625-2 (Version None)
Quarter: 2006Q1

REPORT INFORMATION
  Report Type: 
  Country: None (occurrence: None)
  Receive Date: 20060303
  Receipt Date: 20051004
  Transmission Date: 20060701
  Serious: No
  Sender: FDA-Public Use
  Company Number: US-BRISTOL-MYERS SQUIBB COMPANY-13133699

PATIENT
  Age: 51 Year
  Sex: Male

DRUGS (7)
  1. ERBITUX [Suspect]
     Indication: COLON CANCER
     Route: 042
     Dates: start: 20050902, end: 20050902
  2. IRINOTECAN HCL [Concomitant]
     Indication: COLON CANCER
     Route: 042
     Dates: start: 20050915, end: 20050915
  3. DECADRON SRC [Concomitant]
     Indication: ANTIEMETIC SUPPORTIVE CARE
     Route: 042
  4. ATROPINE [Concomitant]
     Indication: ANTIEMETIC SUPPORTIVE CARE
     Route: 042
  5. ANZEMET [Concomitant]
     Indication: ANTIEMETIC SUPPORTIVE CARE
  6. BENADRYL [Concomitant]
     Indication: ANTIEMETIC SUPPORTIVE CARE
     Route: 048
  7. NORMAL SALINE [Concomitant]
     Indication: FLUID REPLACEMENT

REACTIONS (1)
  - ASTHENIA [None]
